FAERS Safety Report 19026394 (Version 2)
Quarter: 2021Q2

REPORT INFORMATION
  Report Type: Spontaneous
  Country: CN (occurrence: CN)
  Receive Date: 20210318
  Receipt Date: 20210630
  Transmission Date: 20210717
  Serious: Yes (Other)
  Sender: FDA-Public Use
  Company Number: CN-BRISTOL-MYERS SQUIBB COMPANY-BMS-2021-024369

PATIENT

DRUGS (1)
  1. OPDIVO [Suspect]
     Active Substance: NIVOLUMAB
     Indication: LUNG NEOPLASM
     Dosage: UNK,ONCE EVERY THREE WEEKS
     Route: 065

REACTIONS (5)
  - Off label use [Unknown]
  - Cough [Unknown]
  - Pruritus [Unknown]
  - Tongue dry [Unknown]
  - Superior vena cava occlusion [Unknown]
